FAERS Safety Report 17661409 (Version 1)
Quarter: 2020Q2

REPORT INFORMATION
  Report Type: Spontaneous
  Country: US (occurrence: US)
  Receive Date: 20200413
  Receipt Date: 20200413
  Transmission Date: 20200713
  Serious: Yes (Hospitalization)
  Sender: FDA-Public Use
  Company Number: None

PATIENT
  Age: 62 Year
  Sex: Female
  Weight: 86.4 kg

DRUGS (4)
  1. DAPSONE 100MG TABLETS [Suspect]
     Active Substance: DAPSONE
     Indication: GRANULOMA ANNULARE
     Dosage: ?          QUANTITY:1 TABLET(S);?
     Route: 048
  2. OXYGEN. [Concomitant]
     Active Substance: OXYGEN
  3. MELATONIN [Concomitant]
     Active Substance: MELATONIN
  4. ZONISAMIDE. [Concomitant]
     Active Substance: ZONISAMIDE

REACTIONS (7)
  - Heart rate increased [None]
  - Respiratory syncytial virus infection [None]
  - Asthenia [None]
  - Dizziness [None]
  - Hypoxia [None]
  - Blood test abnormal [None]
  - Haemoglobin decreased [None]

NARRATIVE: CASE EVENT DATE: 20190831
